FAERS Safety Report 7514991-3 (Version None)
Quarter: 2011Q2

REPORT INFORMATION
  Report Type: 
  Country: None (occurrence: None)
  Receive Date: 20110601
  Receipt Date: 20110518
  Transmission Date: 20111010
  Serious: Yes (Other)
  Sender: FDA-Public Use
  Company Number: PHHY2011CA40585

PATIENT
  Sex: Female

DRUGS (9)
  1. VITAMIN D [Concomitant]
  2. CALCIUM CARBONATE [Concomitant]
     Dosage: 500 MG, QD
  3. AMLODIPINE [Concomitant]
     Dosage: 5 MG
  4. ZOLEDRONIC ACID [Suspect]
     Indication: OSTEOPOROSIS
     Route: 042
     Dates: start: 20100526
  5. ASPIRIN [Concomitant]
     Dosage: 80 MG, QD
  6. ATORVASTATIN [Concomitant]
     Dosage: 20 MG, QD
  7. DIOVAN [Concomitant]
  8. SYNTHROID [Concomitant]
     Dosage: 1 MG, QD
  9. METOPROLOL TARTRATE [Concomitant]
     Dosage: 25 MG

REACTIONS (2)
  - FALL [None]
  - HIP FRACTURE [None]
